FAERS Safety Report 5167741-2 (Version None)
Quarter: 2006Q4

REPORT INFORMATION
  Report Type: 
  Country: None (occurrence: None)
  Receive Date: 20061130
  Receipt Date: 20061130
  Transmission Date: 20070319
  Serious: No
  Sender: FDA-Public Use
  Company Number: None

PATIENT
  Age: 74 Year
  Sex: Female

DRUGS (1)
  1. ARIPIPRAZOLE 5 MG [Suspect]
     Indication: SCHIZOPHRENIA
     Dosage: 5 MG DAILY PO
     Route: 048
     Dates: start: 20060701, end: 20061129

REACTIONS (3)
  - CONDITION AGGRAVATED [None]
  - MANIA [None]
  - OEDEMA PERIPHERAL [None]
